FAERS Safety Report 10668303 (Version 1)
Quarter: 2014Q4

REPORT INFORMATION
  Report Type: Spontaneous
  Country: US (occurrence: None)
  Receive Date: 20141219
  Receipt Date: 20141219
  Transmission Date: 20150529
  Serious: Yes (Hospitalization)
  Sender: FDA-Public Use
  Company Number: None

PATIENT
  Age: 75 Year
  Sex: Male
  Weight: 97.2 kg

DRUGS (15)
  1. MULTIVITAMIN [Concomitant]
     Active Substance: VITAMINS
  2. SERTRALINE [Concomitant]
     Active Substance: SERTRALINE HYDROCHLORIDE
  3. SIMVASTIN [Concomitant]
     Active Substance: SIMVASTATIN
  4. ACETAMINOPHEN. [Concomitant]
     Active Substance: ACETAMINOPHEN
  5. ALBUTEROL. [Concomitant]
     Active Substance: ALBUTEROL
  6. TAMULOSIN [Concomitant]
     Active Substance: TAMSULOSIN
  7. HYDROCODONE ACETAMINOPHEN [Concomitant]
     Active Substance: ACETAMINOPHEN\HYDROCODONE BITARTRATE
  8. FLUTICASONE [Concomitant]
     Active Substance: FLUTICASONE\FLUTICASONE PROPIONATE
  9. ALLOPURINOL. [Concomitant]
     Active Substance: ALLOPURINOL
  10. CEFEPIME [Concomitant]
     Active Substance: CEFEPIME\CEFEPIME HYDROCHLORIDE
  11. RUXOLITINIB 5 MG TABS [Suspect]
     Active Substance: RUXOLITINIB
     Indication: CHRONIC MYELOID LEUKAEMIA
     Route: 048
     Dates: start: 20141028, end: 20141218
  12. ATENOLOL. [Concomitant]
     Active Substance: ATENOLOL
  13. TOLTERODINE [Concomitant]
     Active Substance: TOLTERODINE
  14. FINASTERIDE. [Concomitant]
     Active Substance: FINASTERIDE
  15. VITAMIN B12-FOLIC ACID [Concomitant]

REACTIONS (6)
  - Pulmonary oedema [None]
  - Dyspnoea [None]
  - Wheezing [None]
  - Lobar pneumonia [None]
  - Pyrexia [None]
  - Hypertension [None]

NARRATIVE: CASE EVENT DATE: 20141217
